FAERS Safety Report 5248097-3 (Version None)
Quarter: 2007Q1

REPORT INFORMATION
  Report Type: 
  Country: None (occurrence: None)
  Receive Date: 20070227
  Receipt Date: 20070223
  Transmission Date: 20070707
  Serious: Yes (Other)
  Sender: FDA-Public Use
  Company Number: US-GLAXOSMITHKLINE-A0641015A

PATIENT
  Sex: Male

DRUGS (1)
  1. VENTOLIN [Suspect]
     Indication: ASTHMA
     Route: 055

REACTIONS (7)
  - ADVERSE DRUG REACTION [None]
  - ASTHMA [None]
  - HEADACHE [None]
  - HYPERTENSION [None]
  - PAIN [None]
  - REACTION TO DRUG EXCIPIENTS [None]
  - SWELLING [None]
